FAERS Safety Report 9057425 (Version 1)
Quarter: 2013Q1

REPORT INFORMATION
  Report Type: Spontaneous
  Country: US (occurrence: US)
  Receive Date: 20130204
  Receipt Date: 20130204
  Transmission Date: 20140127
  Serious: No
  Sender: FDA-Public Use
  Company Number: US-VERTEX PHARMACEUTICALS INC.-2013-001464

PATIENT
  Sex: Male
  Weight: 75 kg

DRUGS (4)
  1. INCIVEK [Suspect]
     Indication: HEPATITIS C
     Dosage: 750 MG, TID
     Route: 048
     Dates: start: 201211
  2. RIBAVIRIN [Suspect]
     Indication: HEPATITIS C
     Dosage: 600 MG, BID
     Dates: start: 201211
  3. PEGASYS [Suspect]
     Indication: HEPATITIS C
     Dosage: 180 ?G, QW
     Dates: start: 201211
  4. NYSTATIN [Concomitant]
     Route: 048

REACTIONS (12)
  - Skin disorder [Unknown]
  - Oedema mouth [Unknown]
  - Blister [Not Recovered/Not Resolved]
  - Skin ulcer [Unknown]
  - Gingival swelling [Not Recovered/Not Resolved]
  - Dysphonia [Unknown]
  - Dysphagia [Unknown]
  - Dry skin [Not Recovered/Not Resolved]
  - Weight decreased [Unknown]
  - Stomatitis [Unknown]
  - Swelling face [Unknown]
  - Anaemia [Not Recovered/Not Resolved]
